FAERS Safety Report 5127967-0 (Version None)
Quarter: 2006Q4

REPORT INFORMATION
  Report Type: 
  Country: None (occurrence: None)
  Receive Date: 20061010
  Receipt Date: 20060926
  Transmission Date: 20070319
  Serious: Yes (Disabling, Other)
  Sender: FDA-Public Use
  Company Number: 2006118572

PATIENT
  Age: 64 Year
  Sex: Male

DRUGS (3)
  1. TAHOR (ATORVASTATIN) [Suspect]
     Indication: HYPERCHOLESTEROLAEMIA
     Dosage: 20 MG (20 MG)
     Dates: start: 20050901, end: 20060821
  2. NOVONORM (REPAGLINIDE) [Concomitant]
  3. METFORMIN HCL [Concomitant]

REACTIONS (7)
  - ARTHRALGIA [None]
  - DRUG INTOLERANCE [None]
  - FATIGUE [None]
  - IMPAIRED DRIVING ABILITY [None]
  - MUSCULOSKELETAL PAIN [None]
  - MYALGIA [None]
  - PAIN IN EXTREMITY [None]
